FAERS Safety Report 23205974 (Version 2)
Quarter: 2023Q4

REPORT INFORMATION
  Report Type: Spontaneous
  Country: AU (occurrence: AU)
  Receive Date: 20231120
  Receipt Date: 20231208
  Transmission Date: 20240109
  Serious: Yes (Death)
  Sender: FDA-Public Use
  Company Number: AU-ORPHANEU-2023008052

PATIENT

DRUGS (2)
  1. SYLVANT [Suspect]
     Active Substance: SILTUXIMAB
     Indication: Castleman^s disease
     Dosage: UNK
     Route: 065
     Dates: end: 2022
  2. SYLVANT [Suspect]
     Active Substance: SILTUXIMAB
     Indication: Neuroblastoma

REACTIONS (1)
  - Pulmonary embolism [Fatal]

NARRATIVE: CASE EVENT DATE: 20220723
